FAERS Safety Report 7962225-8 (Version None)
Quarter: 2011Q4

REPORT INFORMATION
  Report Type: 
  Country: None (occurrence: None)
  Receive Date: 20111207
  Receipt Date: 20111201
  Transmission Date: 20120403
  Serious: Yes (Other)
  Sender: FDA-Public Use
  Company Number: PHEH2011US04102

PATIENT
  Sex: Female
  Weight: 53.515 kg

DRUGS (5)
  1. GILENYA [Suspect]
     Indication: MULTIPLE SCLEROSIS
     Dosage: 0.5 MG, DAILY
     Route: 048
     Dates: start: 20110608, end: 20111108
  2. GILENYA [Suspect]
     Dosage: 0.5 MG, DAILY
     Route: 048
     Dates: end: 20111101
  3. FAMPRIDINE [Concomitant]
     Indication: MULTIPLE SCLEROSIS
     Dosage: 10 MG, BID
     Route: 048
     Dates: start: 20111101
  4. TIZANIDINE HCL [Concomitant]
     Indication: MUSCLE SPASTICITY
     Dosage: UNK UKN, UNK
     Route: 048
     Dates: start: 20110901
  5. LIDODERM [Concomitant]
     Dosage: UNK UKN, UNK

REACTIONS (4)
  - BACK PAIN [None]
  - NEPHROLITHIASIS [None]
  - URINARY TRACT INFECTION [None]
  - CHROMATURIA [None]
